FAERS Safety Report 20718703 (Version 1)
Quarter: 2022Q2

REPORT INFORMATION
  Report Type: Spontaneous
  Country: ES (occurrence: ES)
  Receive Date: 20220418
  Receipt Date: 20220418
  Transmission Date: 20220720
  Serious: Yes (Hospitalization)
  Sender: FDA-Public Use
  Company Number: ES-AMGEN-ESPSP2022063326

PATIENT
  Age: 37 Year
  Sex: Female

DRUGS (5)
  1. ADALIMUMAB [Suspect]
     Active Substance: ADALIMUMAB
     Indication: Rosai-Dorfman syndrome
     Dosage: UNK
     Route: 065
  2. TACROLIMUS [Concomitant]
     Active Substance: TACROLIMUS
  3. DAPSONE [Concomitant]
     Active Substance: DAPSONE
  4. ISOTRETINOIN [Concomitant]
     Active Substance: ISOTRETINOIN
  5. RIFAMPIN [Concomitant]
     Active Substance: RIFAMPIN

REACTIONS (4)
  - Rosai-Dorfman syndrome [Recovered/Resolved]
  - Diarrhoea [Recovered/Resolved]
  - Off label use [Unknown]
  - Drug ineffective for unapproved indication [Unknown]
